FAERS Safety Report 15348079 (Version 3)
Quarter: 2018Q3

REPORT INFORMATION
  Report Type: Spontaneous
  Country: US (occurrence: US)
  Receive Date: 20180904
  Receipt Date: 20180907
  Transmission Date: 20181010
  Serious: Yes (Other)
  Sender: FDA-Public Use
  Company Number: PHEH2018US035557

PATIENT
  Sex: Female

DRUGS (8)
  1. ENBREL [Suspect]
     Active Substance: ETANERCEPT
     Indication: PSORIATIC ARTHROPATHY
     Dosage: 50 MG, QW
     Route: 065
     Dates: start: 201201, end: 201210
  2. ENBREL [Suspect]
     Active Substance: ETANERCEPT
     Dosage: 50 MG, QW
     Route: 065
     Dates: start: 201508, end: 201605
  3. REMICADE [Suspect]
     Active Substance: INFLIXIMAB
     Indication: PSORIATIC ARTHROPATHY
     Dosage: UNK
     Route: 065
     Dates: start: 201402, end: 201407
  4. SIMPONI [Suspect]
     Active Substance: GOLIMUMAB
     Indication: PSORIATIC ARTHROPATHY
     Dosage: UNK
     Route: 058
     Dates: start: 201407, end: 201508
  5. ENBREL [Suspect]
     Active Substance: ETANERCEPT
     Dosage: 50 MG, QW
     Route: 065
     Dates: start: 201701, end: 201806
  6. METHOTREXATE. [Concomitant]
     Active Substance: METHOTREXATE
     Indication: PRODUCT USED FOR UNKNOWN INDICATION
     Dosage: UNK
     Route: 065
     Dates: start: 201206
  7. COSENTYX [Suspect]
     Active Substance: SECUKINUMAB
     Indication: PSORIATIC ARTHROPATHY
     Dosage: UNK
     Route: 065
     Dates: start: 201606, end: 201612
  8. HUMIRA [Suspect]
     Active Substance: ADALIMUMAB
     Indication: PSORIATIC ARTHROPATHY
     Dosage: UNK
     Route: 065
     Dates: start: 201211, end: 201401

REACTIONS (2)
  - Drug effect decreased [Unknown]
  - Spinal osteoarthritis [Unknown]
